FAERS Safety Report 6085504-0 (Version None)
Quarter: 2009Q1

REPORT INFORMATION
  Report Type: 
  Country: None (occurrence: None)
  Receive Date: 20090220
  Receipt Date: 20090212
  Transmission Date: 20090719
  Serious: Yes (Other)
  Sender: FDA-Public Use
  Company Number: US-JNJCH-2009004166

PATIENT
  Age: 4 Year
  Sex: Male
  Weight: 17.7 kg

DRUGS (1)
  1. CHILDREN'S SUDAFED NASAL DECONGESTANT [Suspect]
     Indication: NASOPHARYNGITIS
     Dosage: TEXT:ONE TEASPOONFUL TWICE
     Route: 048

REACTIONS (2)
  - DYSGEUSIA [None]
  - PRODUCT TAMPERING [None]
